FAERS Safety Report 21368604 (Version 2)
Quarter: 2022Q3

REPORT INFORMATION
  Report Type: Spontaneous
  Country: US (occurrence: None)
  Receive Date: 20220923
  Receipt Date: 20220928
  Transmission Date: 20221026
  Serious: Yes (Other)
  Sender: FDA-Public Use
  Company Number: US-ROCHE-3184409

PATIENT
  Age: 61 Year
  Sex: Female
  Weight: 90.800 kg

DRUGS (5)
  1. PHESGO [Suspect]
     Active Substance: HYALURONIDASE-ZZXF\PERTUZUMAB\TRASTUZUMAB
     Indication: HER2 positive breast cancer
     Dosage: MORE DOSAGE INFORMATION: LEFT THIGH
     Route: 058
     Dates: start: 20211109, end: 20211109
  2. HERCEPTIN [Suspect]
     Active Substance: TRASTUZUMAB
     Indication: HER2 positive breast cancer
     Dosage: MORE DOSAGE INFORMATION EVERY 3 WEEKS FOR 18 TREATMENTS- THROUGH HER PORT
     Route: 041
     Dates: start: 20210525, end: 20220629
  3. PERJETA [Suspect]
     Active Substance: PERTUZUMAB
     Indication: HER2 positive breast cancer
     Dosage: MORE DOSAGE INFORMATION EVERY 3 WEEKS FOR 18 TREATMENTS- THROUGH HER PORT
     Route: 042
     Dates: start: 20210525, end: 20220629
  4. GLIMEPIRIDE [Concomitant]
     Active Substance: GLIMEPIRIDE
     Indication: Type 2 diabetes mellitus
     Dosage: MORE DOSAGE INFORMATION LAST DOSE 20-SEP-2022
     Route: 048
  5. ASPIRIN [Concomitant]
     Active Substance: ASPIRIN
     Dosage: MORE DOSAGE INFORMATION LAST DOSE 19-SEP-2022
     Route: 048

REACTIONS (14)
  - Blindness [Not Recovered/Not Resolved]
  - Optic atrophy [Not Recovered/Not Resolved]
  - Optic neuropathy [Not Recovered/Not Resolved]
  - Blindness [Not Recovered/Not Resolved]
  - Muscular weakness [Not Recovered/Not Resolved]
  - Blood magnesium decreased [Recovered/Resolved]
  - Toxicity to various agents [Not Recovered/Not Resolved]
  - Hypoaesthesia [Unknown]
  - Muscular weakness [Not Recovered/Not Resolved]
  - Disability [Not Recovered/Not Resolved]
  - Visual field defect [Unknown]
  - Optic nerve injury [Not Recovered/Not Resolved]
  - Toxic optic neuropathy [Unknown]
  - Drug hypersensitivity [Not Recovered/Not Resolved]

NARRATIVE: CASE EVENT DATE: 20210927
